FAERS Safety Report 8435070-7 (Version None)
Quarter: 2012Q2

REPORT INFORMATION
  Report Type: 
  Country: None (occurrence: None)
  Receive Date: 20120614
  Receipt Date: 20120608
  Transmission Date: 20120825
  Serious: Yes (Other)
  Sender: FDA-Public Use
  Company Number: PHEH2012US011597

PATIENT
  Sex: Female

DRUGS (2)
  1. LODINE [Suspect]
  2. VOLTAREN [Suspect]

REACTIONS (3)
  - MOUTH ULCERATION [None]
  - GLOSSODYNIA [None]
  - CHOKING [None]
